FAERS Safety Report 9834529 (Version 16)
Quarter: 2019Q4

REPORT INFORMATION
  Report Type: Report from Study
  Country: CA (occurrence: CA)
  Receive Date: 20140122
  Receipt Date: 20191025
  Transmission Date: 20200122
  Serious: Yes (Hospitalization, Other)
  Sender: FDA-Public Use
  Company Number: CA-ALEXION PHARMACEUTICALS INC.-A201400105

PATIENT
  Age: 25 Year
  Sex: Male
  Weight: 95.24 kg

DRUGS (30)
  1. SOLIRIS [Suspect]
     Active Substance: ECULIZUMAB
     Dosage: 900 MG, Q2W
     Route: 042
     Dates: start: 20130509
  2. TAZOCIN [Concomitant]
     Active Substance: PIPERACILLIN SODIUM\TAZOBACTAM SODIUM
     Indication: ANTIBIOTIC PROPHYLAXIS
     Dosage: 4.5 G, QID
     Route: 042
     Dates: start: 20130408, end: 20130411
  3. DAPTOMYCIN. [Concomitant]
     Active Substance: DAPTOMYCIN
     Indication: INFECTION
     Dosage: 100 MG, QD
     Route: 042
     Dates: start: 20130403, end: 20130416
  4. HYDROMORPHONE [Concomitant]
     Active Substance: HYDROMORPHONE
     Indication: PAIN
     Dosage: 2 MG, PRN
     Route: 058
     Dates: start: 20130402, end: 201304
  5. SOLU-CORTEF [Concomitant]
     Active Substance: HYDROCORTISONE SODIUM SUCCINATE
     Dosage: UNK
     Route: 030
  6. SOLIRIS [Suspect]
     Active Substance: ECULIZUMAB
     Dosage: 900 MG, Q2W
     Route: 042
     Dates: start: 20130509
  7. SOLU-CORTEF [Concomitant]
     Active Substance: HYDROCORTISONE SODIUM SUCCINATE
     Indication: TRANSFUSION REACTION
     Dosage: 50 MG, PRN
     Route: 042
     Dates: start: 20130403
  8. CIPROFLOXACIN. [Concomitant]
     Active Substance: CIPROFLOXACIN
     Indication: COLITIS
     Dosage: 500 MG, POS, BID
     Route: 048
     Dates: start: 20130429, end: 20130509
  9. SOLIRIS [Suspect]
     Active Substance: ECULIZUMAB
     Indication: PAROXYSMAL NOCTURNAL HAEMOGLOBINURIA
     Dosage: 600 MG, QW
     Route: 042
     Dates: start: 20130408, end: 20130502
  10. SOLIRIS [Suspect]
     Active Substance: ECULIZUMAB
     Dosage: 900 MG, Q2W
     Route: 042
     Dates: start: 20130509
  11. VORICONAZOLE. [Concomitant]
     Active Substance: VORICONAZOLE
     Indication: FUNGAL INFECTION
     Dosage: 580 MG, BID
     Route: 042
     Dates: start: 20130415, end: 20130416
  12. MEROPENEM. [Concomitant]
     Active Substance: MEROPENEM
     Indication: ANTIBIOTIC THERAPY
     Dosage: 1000 MG, TID
     Route: 042
     Dates: start: 20130416, end: 20130422
  13. CEFEPIME [Concomitant]
     Active Substance: CEFEPIME HYDROCHLORIDE
     Indication: SEPTIC SHOCK
     Dosage: 2 G, TID
     Route: 042
     Dates: start: 20130414, end: 20130416
  14. SOLIRIS [Suspect]
     Active Substance: ECULIZUMAB
     Dosage: 900 MG, UNK
     Route: 042
  15. DEFEROXAMINE [Suspect]
     Active Substance: DEFEROXAMINE MESYLATE
     Indication: BLOOD IRON INCREASED
     Dosage: UNK, QD
     Route: 058
  16. FLUCONAZOLE. [Concomitant]
     Active Substance: FLUCONAZOLE
     Indication: ANTIBIOTIC PROPHYLAXIS
     Dosage: 400 MG, QD
     Route: 042
     Dates: start: 20130408, end: 20130411
  17. VORICONAZOLE. [Concomitant]
     Active Substance: VORICONAZOLE
     Dosage: 380 MG, BID
     Route: 042
     Dates: start: 20130416, end: 201304
  18. ACETAMINOPHEN. [Concomitant]
     Active Substance: ACETAMINOPHEN
     Indication: PROPHYLAXIS
     Dosage: 650 MG, ONCE
     Route: 048
     Dates: start: 20130410, end: 20130410
  19. BENADRYL [Concomitant]
     Active Substance: DIPHENHYDRAMINE HYDROCHLORIDE
     Indication: TRANSFUSION REACTION
     Dosage: 50 MG, PRN
     Route: 042
     Dates: start: 20130403
  20. ATIVAN [Concomitant]
     Active Substance: LORAZEPAM
     Indication: ANXIOLYTIC THERAPY
     Dosage: 1 MG, HS PRN
     Route: 048
     Dates: start: 20130402
  21. GRAVOL [Concomitant]
     Active Substance: DIMENHYDRINATE
     Indication: TRANSFUSION REACTION
     Dosage: 50 MG, PRN
     Route: 042
     Dates: start: 20130402
  22. PANTOLOC                           /01263204/ [Concomitant]
     Active Substance: PANTOPRAZOLE SODIUM
     Indication: PROPHYLAXIS
     Dosage: 40 MG, 1 CO, POS, QD
     Route: 048
     Dates: start: 20130509
  23. EXJADE [Concomitant]
     Active Substance: DEFERASIROX
     Dosage: 600 MG, QW
     Route: 042
  24. SOLIRIS [Suspect]
     Active Substance: ECULIZUMAB
     Dosage: 900 MG, Q2W
     Route: 042
     Dates: start: 20130509
  25. SERAX [Concomitant]
     Active Substance: OXAZEPAM
     Indication: SLEEP DISORDER
     Dosage: 15 MG, HS, POS,  PRN
     Route: 048
     Dates: start: 20130509
  26. HUMULIN L [Concomitant]
     Active Substance: INSULIN HUMAN
     Indication: NUTRITIONAL SUPPLEMENTATION
     Dosage: UNK, QID
     Route: 058
     Dates: start: 20130313, end: 201304
  27. CIPROFLOXACIN. [Concomitant]
     Active Substance: CIPROFLOXACIN
     Indication: SEPTIC SHOCK
  28. HYDROMORPHONE [Concomitant]
     Active Substance: HYDROMORPHONE
     Dosage: 2 MG, PRN
     Route: 048
     Dates: start: 20130408
  29. PARENTERAL FEEDING [Concomitant]
     Indication: NUTRITIONAL SUPPLEMENTATION
     Dosage: 1079 ML, UNK
     Route: 042
     Dates: start: 20130406, end: 20130414
  30. EXJADE [Concomitant]
     Active Substance: DEFERASIROX
     Indication: BLOOD IRON INCREASED
     Dosage: UNK
     Route: 048
     Dates: start: 201408

REACTIONS (16)
  - Subcutaneous abscess [Not Recovered/Not Resolved]
  - Ear pain [Not Recovered/Not Resolved]
  - Blood iron increased [Recovering/Resolving]
  - Rash [Not Recovered/Not Resolved]
  - Chest pain [Recovered/Resolved]
  - Injection site infection [Not Recovered/Not Resolved]
  - Drug ineffective [Not Recovered/Not Resolved]
  - Fatigue [Not Recovered/Not Resolved]
  - Haemoglobin decreased [Not Recovered/Not Resolved]
  - Abdominal pain upper [Not Recovered/Not Resolved]
  - Abdominal pain [Recovered/Resolved]
  - Tooth extraction [Unknown]
  - Platelet count decreased [Not Recovered/Not Resolved]
  - Toothache [Recovered/Resolved]
  - Swelling [Not Recovered/Not Resolved]
  - Pyrexia [Recovered/Resolved]

NARRATIVE: CASE EVENT DATE: 201401
